FAERS Safety Report 8758947 (Version 1)
Quarter: 2012Q4

REPORT INFORMATION
  Report Type: 
  Country: DE (occurrence: DE)
  Receive Date: 20120829
  Receipt Date: 20120829
  Transmission Date: 20130627
  Serious: Yes (Hospitalization)
  Sender: FDA-Public Use
  Company Number: DE-SANOFI-AVENTIS-2012SA061234

PATIENT
  Age: 47 Year
  Sex: Male
  Weight: 102 kg

DRUGS (1)
  1. PENTOXIFYLLINE [Suspect]
     Indication: SUDDEN HEARING LOSS
     Dosage: daily dose: 1200 Mg millgram(s) every Days
     Route: 048
     Dates: start: 20120320, end: 20120324

REACTIONS (3)
  - Pancreatitis relapsing [Recovering/Resolving]
  - Abdominal discomfort [Recovering/Resolving]
  - C-reactive protein increased [Recovering/Resolving]
